FAERS Safety Report 7960973-7 (Version None)
Quarter: 2011Q4

REPORT INFORMATION
  Report Type: 
  Country: None (occurrence: None)
  Receive Date: 20111207
  Receipt Date: 20111129
  Transmission Date: 20120403
  Serious: Yes (Other)
  Sender: FDA-Public Use
  Company Number: IL-JNJFOC-20111112364

PATIENT
  Age: 40 Year
  Sex: Female

DRUGS (3)
  1. REMICADE [Suspect]
     Indication: COLITIS ULCERATIVE
     Route: 042
  2. REMICADE [Suspect]
     Route: 042
     Dates: start: 20110811
  3. REMICADE [Suspect]
     Route: 042

REACTIONS (3)
  - RASH [None]
  - ANTIBODY TEST POSITIVE [None]
  - SUFFOCATION FEELING [None]
